FAERS Safety Report 22268090 (Version 3)
Quarter: 2023Q4

REPORT INFORMATION
  Report Type: Report from Study
  Country: AR (occurrence: AR)
  Receive Date: 20230430
  Receipt Date: 20231117
  Transmission Date: 20240109
  Serious: Yes (Other)
  Sender: FDA-Public Use
  Company Number: AR-002147023-NVSC2023AR097228

PATIENT
  Sex: Female

DRUGS (2)
  1. COSENTYX [Suspect]
     Active Substance: SECUKINUMAB
     Indication: Axial spondyloarthritis
     Dosage: UNK
     Route: 065
     Dates: start: 20220930
  2. COSENTYX [Suspect]
     Active Substance: SECUKINUMAB
     Dosage: 150 MG, QMO
     Route: 058

REACTIONS (8)
  - Hypothyroidism [Unknown]
  - Somnolence [Unknown]
  - Pain [Unknown]
  - Muscle rigidity [Unknown]
  - Emotional disorder [Unknown]
  - Muscle contracture [Unknown]
  - Discomfort [Unknown]
  - Product dose omission issue [Unknown]
